FAERS Safety Report 6289105 (Version 4)
Quarter: 2013Q1

REPORT INFORMATION
  Report Type: Report from Study
  Country: US (occurrence: US)
  Receive Date: 20070416
  Receipt Date: 20130304
  Transmission Date: 20140127
  Serious: Yes (Hospitalization, Other)
  Sender: FDA-Public Use
  Company Number: US-ELI_LILLY_AND_COMPANY-US200702003511

PATIENT
  Sex: Male
  Weight: 69.62 kg

DRUGS (15)
  1. HYDROCORTISONE [Concomitant]
     Indication: HYPOPITUITARISM
  2. FLUDROCORTISONE [Concomitant]
     Indication: HYPOPITUITARISM
     Dosage: UNK
     Dates: start: 1964
  3. L-THYROXIN [Concomitant]
     Indication: HYPOTHYROIDISM
     Dosage: UNK
     Dates: start: 1964
  4. GLUCOCORTICOIDS [Concomitant]
     Indication: ADRENAL INSUFFICIENCY
     Dates: start: 20040226
  5. ANDROGENS [Concomitant]
     Indication: ADRENAL INSUFFICIENCY
     Dates: start: 20040226
  6. VASOTEC [Concomitant]
     Indication: HYPERTENSION
     Dates: start: 20040226
  7. FUROSEMIDE [Concomitant]
     Indication: HYPERTENSION
     Dosage: UNK
  8. TESTOSTERONE [Concomitant]
     Indication: HYPOPITUITARISM
     Dosage: UNK
     Dates: start: 1964
  9. ASPIRIN [Concomitant]
     Indication: CORONARY ARTERY DISEASE
     Dosage: UNK
     Dates: start: 2009
  10. HYDROCHLOROTHIAZIDE [Concomitant]
     Indication: HYPERTENSION
     Dosage: UNK
     Dates: start: 1996
  11. LIPITOR [Concomitant]
     Indication: HYPERCHOLESTEROLAEMIA
     Dosage: UNK
     Dates: start: 2009
  12. OMEPRAZOLE [Concomitant]
     Indication: DYSPEPSIA
     Dosage: UNK
     Dates: start: 2009
  13. FELODIPINE [Concomitant]
     Indication: HYPERTENSION
     Dosage: UNK
     Dates: start: 2010
  14. TERAZOSIN [Concomitant]
     Indication: BENIGN PROSTATIC HYPERPLASIA
     Dosage: UNK
     Dates: start: 2009
  15. SOMATROPIN [Suspect]
     Indication: CUSHING^S SYNDROME
     Dosage: 0.2 MG, UNK
     Dates: start: 20040226

REACTIONS (1)
  - Dysplasia [Recovered/Resolved]
